FAERS Safety Report 4633864-7 (Version None)
Quarter: 2005Q1

REPORT INFORMATION
  Report Type: 
  Country: None (occurrence: None)
  Receive Date: 20050325
  Receipt Date: 20041213
  Transmission Date: 20050727
  Serious: No
  Sender: FDA-Public Use
  Company Number: USA041285821

PATIENT
  Age: 59 Year
  Sex: Male
  Weight: 91 kg

DRUGS (10)
  1. FORTEO [Suspect]
     Indication: OSTEOPOROSIS
     Dates: start: 20041206
  2. BEXTRA [Concomitant]
  3. OXYCONTIN [Interacting]
  4. DIOVAN [Concomitant]
  5. METOPROLOL TARTRATE [Concomitant]
  6. NEURONTIN (GABAPENTIN PFIZER) [Concomitant]
  7. NORVASC [Concomitant]
  8. ZOCOR (SIMVASTATIN RATIOPHARM) [Concomitant]
  9. CALCIUM PLUS D [Concomitant]
  10. OMEGA - 3 FISH OIL [Concomitant]

REACTIONS (6)
  - BACK PAIN [None]
  - LARYNGITIS [None]
  - MASS [None]
  - MUSCLE SPASMS [None]
  - SPINAL FRACTURE [None]
  - VERTIGO [None]
